APPROVED DRUG PRODUCT: INDOCYANINE GREEN
Active Ingredient: INDOCYANINE GREEN
Strength: 25MG/VIAL
Dosage Form/Route: INJECTABLE;INJECTION
Application: A040811 | Product #001 | TE Code: AP
Applicant: RENEW PHARMACEUTICALS LTD
Approved: Nov 21, 2007 | RLD: No | RS: Yes | Type: RX